FAERS Safety Report 23466391 (Version 1)
Quarter: 2024Q1

REPORT INFORMATION
  Report Type: Spontaneous
  Country: US (occurrence: US)
  Receive Date: 20240201
  Receipt Date: 20240201
  Transmission Date: 20240409
  Serious: No
  Sender: FDA-Public Use
  Company Number: US-BAXTER-2024BAX011585

PATIENT

DRUGS (1)
  1. VANCOMYCIN HYDROCHLORIDE [Suspect]
     Active Substance: VANCOMYCIN HYDROCHLORIDE
     Dosage: VANCOMYCIN INJECTION 1 G IN 5% DEXTROSE 1 GRAM/200 ML IN GALAXY PLASTIC CONTAINER FROZEN PREMIX
     Route: 065

REACTIONS (1)
  - Pruritus [Unknown]
